FAERS Safety Report 16351614 (Version 1)
Quarter: 2019Q2

REPORT INFORMATION
  Report Type: Spontaneous
  Country: NG (occurrence: NG)
  Receive Date: 20190524
  Receipt Date: 20190524
  Transmission Date: 20190711
  Serious: Yes (Hospitalization, Other)
  Sender: FDA-Public Use
  Company Number: NG-HETERO CORPORATE-HET2019NG00720

PATIENT
  Age: 52 Year
  Sex: Male

DRUGS (1)
  1. EFAVIRENZ+LAMIVUDINE+TENOFOVIR [Suspect]
     Active Substance: EFAVIRENZ\LAMIVUDINE\TENOFOVIR DISOPROXIL FUMARATE
     Indication: HIV INFECTION
     Dosage: UNK
     Route: 065

REACTIONS (2)
  - Meningitis cryptococcal [Unknown]
  - Immune reconstitution inflammatory syndrome [Unknown]
